FAERS Safety Report 9722258 (Version 2)
Quarter: 2014Q1

REPORT INFORMATION
  Report Type: Report from Study
  Country: CA (occurrence: CA)
  Receive Date: 20131202
  Receipt Date: 20140311
  Transmission Date: 20141002
  Serious: Yes (Hospitalization)
  Sender: FDA-Public Use
  Company Number: CA-JNJFOC-20131115369

PATIENT
  Age: 54 Year
  Sex: Male
  Weight: 83.01 kg

DRUGS (1)
  1. REMICADE [Suspect]
     Indication: CROHN^S DISEASE
     Dosage: 6 YEARS PRIOR TO THE DATE OF THIS REPORT
     Route: 042

REACTIONS (1)
  - Myocardial infarction [Unknown]
